FAERS Safety Report 20751481 (Version 3)
Quarter: 2022Q2

REPORT INFORMATION
  Report Type: Spontaneous
  Country: US (occurrence: US)
  Receive Date: 20220426
  Receipt Date: 20220517
  Transmission Date: 20220721
  Serious: Yes (Hospitalization, Other)
  Sender: FDA-Public Use
  Company Number: US-PFIZER INC-202200596807

PATIENT
  Age: 62 Year
  Sex: Male
  Weight: 90.26 kg

DRUGS (2)
  1. RUXIENCE [Suspect]
     Active Substance: RITUXIMAB-PVVR
     Indication: Marginal zone lymphoma
     Dosage: 100 MG
     Route: 042
  2. RUXIENCE [Suspect]
     Active Substance: RITUXIMAB-PVVR
     Dosage: 150 MG (150 MG Q 7DAYS X 2, 1 WK OFF)
     Route: 042
     Dates: start: 20210104

REACTIONS (8)
  - Cholecystitis infective [Unknown]
  - Blood pressure abnormal [Unknown]
  - Dyspnoea [Unknown]
  - Diabetes mellitus [Unknown]
  - Pneumonia [Unknown]
  - Off label use [Unknown]
  - Eye disorder [Unknown]
  - Condition aggravated [Unknown]

NARRATIVE: CASE EVENT DATE: 20220201
